FAERS Safety Report 23457193 (Version 1)
Quarter: 2024Q1

REPORT INFORMATION
  Report Type: Spontaneous
  Country: US (occurrence: None)
  Receive Date: 20240130
  Receipt Date: 20240130
  Transmission Date: 20240410
  Serious: No
  Sender: FDA-Public Use
  Company Number: None

PATIENT
  Age: 79 Year
  Sex: Male
  Weight: 74.84 kg

DRUGS (6)
  1. FIRMAGON [Suspect]
     Active Substance: DEGARELIX ACETATE
     Indication: Prostate cancer
     Dosage: FREQUENCY : MONTHLY;?
     Route: 058
     Dates: start: 201708
  2. FIRMAGON [Suspect]
     Active Substance: DEGARELIX ACETATE
     Indication: Osteoporosis
  3. FIRMAGON [Suspect]
     Active Substance: DEGARELIX ACETATE
     Indication: Metastases to bone
  4. XGEVA [Suspect]
     Active Substance: DENOSUMAB
     Indication: Prostate cancer
     Dosage: FREQUENCY : MONTHLY;?
     Route: 058
     Dates: start: 202307
  5. XGEVA [Suspect]
     Active Substance: DENOSUMAB
     Indication: Osteoporosis
  6. XGEVA [Suspect]
     Active Substance: DENOSUMAB
     Indication: Metastases to bone

REACTIONS (1)
  - Pneumonia [None]
